FAERS Safety Report 9882329 (Version 1)
Quarter: 2014Q1

REPORT INFORMATION
  Report Type: Spontaneous
  Country: US (occurrence: US)
  Receive Date: 20140207
  Receipt Date: 20140207
  Transmission Date: 20141002
  Serious: Yes (Other)
  Sender: FDA-Public Use
  Company Number: ALCN2014US000942

PATIENT
  Age: 79 Year
  Sex: Female

DRUGS (1)
  1. PREDNISOLONE [Suspect]
     Dosage: 1 DF, Q2H
     Route: 047

REACTIONS (3)
  - Corneal epithelium defect [Recovering/Resolving]
  - Corneal opacity [Recovering/Resolving]
  - Visual acuity reduced [Recovering/Resolving]
